FAERS Safety Report 15387791 (Version 1)
Quarter: 2018Q3

REPORT INFORMATION
  Report Type: Spontaneous
  Country: US (occurrence: US)
  Receive Date: 20180914
  Receipt Date: 20180914
  Transmission Date: 20181010
  Serious: No
  Sender: FDA-Public Use
  Company Number: US-AQUA PHARMACEUTICALS-2017AQU000397

PATIENT

DRUGS (1)
  1. FLUOROPLEX [Suspect]
     Active Substance: FLUOROURACIL
     Indication: SKIN PAPILLOMA
     Dosage: UNK, QD
     Route: 061
     Dates: start: 2017, end: 201712

REACTIONS (3)
  - Drug ineffective for unapproved indication [Unknown]
  - Application site laceration [Not Recovered/Not Resolved]
  - Application site discolouration [Not Recovered/Not Resolved]

NARRATIVE: CASE EVENT DATE: 2017
